FAERS Safety Report 14837500 (Version 1)
Quarter: 2018Q2

REPORT INFORMATION
  Report Type: Spontaneous
  Country: DE (occurrence: DE)
  Receive Date: 20180502
  Receipt Date: 20180502
  Transmission Date: 20180711
  Serious: Yes (Hospitalization)
  Sender: FDA-Public Use
  Company Number: PHHY2016DE186738

PATIENT
  Age: 81 Year
  Sex: Female
  Weight: 57 kg

DRUGS (7)
  1. FLUOROURACIL. [Suspect]
     Active Substance: FLUOROURACIL
     Dosage: 1920 MG/M2, UNK
     Route: 042
     Dates: start: 20161116
  2. FOLIC ACID. [Suspect]
     Active Substance: FOLIC ACID
     Indication: COLON CANCER
     Dosage: 320 MG/M2, UNK
     Route: 042
     Dates: start: 20160422
  3. FLUOROURACIL. [Suspect]
     Active Substance: FLUOROURACIL
     Indication: COLON CANCER
     Dosage: 1920 MG/M2, UNK
     Route: 042
     Dates: start: 20160422
  4. FOLIC ACID. [Suspect]
     Active Substance: FOLIC ACID
     Dosage: 320 MG/M2, UNK
     Route: 042
     Dates: start: 20161114
  5. OXALIPLATIN. [Concomitant]
     Active Substance: OXALIPLATIN
     Dosage: 425 MG/M2, UNK
     Route: 042
     Dates: start: 20160708
  6. OXALIPLATIN. [Concomitant]
     Active Substance: OXALIPLATIN
     Indication: COLON CANCER
     Dosage: 425 MG/M2, UNK
     Route: 042
     Dates: start: 20160422
  7. PANITUMUMAB [Suspect]
     Active Substance: PANITUMUMAB
     Indication: COLON CANCER
     Dosage: 378 MG, UNK
     Route: 042

REACTIONS (1)
  - Nausea [Not Recovered/Not Resolved]

NARRATIVE: CASE EVENT DATE: 20161121
